FAERS Safety Report 4374489-0 (Version None)
Quarter: 2004Q2

REPORT INFORMATION
  Report Type: 
  Country: None (occurrence: None)
  Receive Date: 20040602
  Receipt Date: 20040227
  Transmission Date: 20050107
  Serious: No
  Sender: FDA-Public Use
  Company Number: 200414110BWH

PATIENT
  Age: 54 Year
  Sex: Male

DRUGS (3)
  1. LEVITRA [Suspect]
     Indication: ERECTILE DYSFUNCTION
     Dosage: 20 MG PRN ORAL/ 10 MG TOTAL DAILY,ORAL
     Route: 048
     Dates: start: 20041201
  2. ... [Suspect]
     Dosage: 10 MG TOTAL DAILY ORAL
     Route: 048
  3. VIAGRA [Concomitant]

REACTIONS (3)
  - EYE REDNESS [None]
  - HEADACHE [None]
  - NASAL CONGESTION [None]
